FAERS Safety Report 5118416-7 (Version None)
Quarter: 2006Q3

REPORT INFORMATION
  Report Type: 
  Country: None (occurrence: None)
  Receive Date: 20060927
  Receipt Date: 20060913
  Transmission Date: 20061208
  Serious: Yes (Other)
  Sender: FDA-Public Use
  Company Number: ACO_0270_2006

PATIENT
  Sex: Female
  Weight: 70 kg

DRUGS (2)
  1. SIRDALUD [Suspect]
     Indication: MUSCLE RELAXANT THERAPY
     Dosage: 2 MG BID PO
     Route: 048
     Dates: end: 20060831
  2. DESOGESTREL [Concomitant]

REACTIONS (8)
  - DIZZINESS [None]
  - DRY MOUTH [None]
  - FEELING ABNORMAL [None]
  - MALAISE [None]
  - NAUSEA [None]
  - RETCHING [None]
  - TACHYCARDIA [None]
  - VISION BLURRED [None]
